FAERS Safety Report 14672922 (Version 1)
Quarter: 2018Q1

REPORT INFORMATION
  Report Type: Spontaneous
  Country: US (occurrence: US)
  Receive Date: 20180323
  Receipt Date: 20180323
  Transmission Date: 20180509
  Serious: No
  Sender: FDA-Public Use
  Company Number: US-ASTRAZENECA-2018SE24038

PATIENT
  Age: 18 Year
  Sex: Male

DRUGS (1)
  1. SYMBICORT [Suspect]
     Active Substance: BUDESONIDE\FORMOTEROL FUMARATE DIHYDRATE
     Indication: ASTHMA
     Dosage: 160/4.5MCG UNKNOWN DOSE UNKNOWN
     Route: 055
     Dates: start: 20180213

REACTIONS (1)
  - Tongue blistering [Recovered/Resolved]

NARRATIVE: CASE EVENT DATE: 20180213
